FAERS Safety Report 4323603-1 (Version None)
Quarter: 2004Q1

REPORT INFORMATION
  Report Type: 
  Country: None (occurrence: None)
  Receive Date: 20040322
  Receipt Date: 20040310
  Transmission Date: 20041129
  Serious: Yes (Other)
  Sender: FDA-Public Use
  Company Number: GB-JNJFOC-20040302395

PATIENT
  Age: 56 Year
  Sex: Female
  Weight: 50 kg

DRUGS (4)
  1. REMICADE [Suspect]
     Indication: RHEUMATOID ARTHRITIS
     Dosage: 10 MG/ML, INTRAVENOUS
     Route: 042
     Dates: start: 20021101, end: 20040127
  2. METHOTREXATE [Concomitant]
  3. FOLIC ACID [Concomitant]
  4. BENDROFLUAZIDE (BENDROFLUMETHIAZIDE) [Concomitant]

REACTIONS (4)
  - BLOOD PRESSURE INCREASED [None]
  - FLUSHING [None]
  - INFUSION RELATED REACTION [None]
  - THROAT TIGHTNESS [None]
